FAERS Safety Report 9454137 (Version 1)
Quarter: 2013Q3

REPORT INFORMATION
  Report Type: Spontaneous
  Country: US (occurrence: None)
  Receive Date: 20130807
  Receipt Date: 20130807
  Transmission Date: 20140515
  Serious: Yes (Congenital Anomaly)
  Sender: FDA-Public Use
  Company Number: SYM-2013-07659

PATIENT
  Age: 0 Day
  Sex: Male

DRUGS (1)
  1. WELLBUTRIN [Suspect]
     Indication: PRODUCT USED FOR UNKNOWN INDICATION

REACTIONS (3)
  - Congenital pulmonary valve atresia [None]
  - Right ventricle outflow tract obstruction [None]
  - Maternal drugs affecting foetus [None]
